FAERS Safety Report 7458876-X (Version None)
Quarter: 2011Q2

REPORT INFORMATION
  Report Type: 
  Country: None (occurrence: None)
  Receive Date: 20110504
  Receipt Date: 20110426
  Transmission Date: 20111010
  Serious: Yes (Other)
  Sender: FDA-Public Use
  Company Number: PHHY2011DE35285

PATIENT
  Sex: Female

DRUGS (2)
  1. GLEEVEC [Suspect]
  2. ENOXAPARIN SODIUM [Concomitant]
     Dates: start: 20110401

REACTIONS (1)
  - LOWER LIMB FRACTURE [None]
